FAERS Safety Report 7611522-4 (Version None)
Quarter: 2011Q3

REPORT INFORMATION
  Report Type: 
  Country: None (occurrence: None)
  Receive Date: 20110715
  Receipt Date: 20110630
  Transmission Date: 20111222
  Serious: Yes (Other)
  Sender: FDA-Public Use
  Company Number: US-WATSON-2011-10285

PATIENT
  Age: 9 Year
  Sex: Female

DRUGS (4)
  1. FLUTICASONE (UNKNOWN) [Suspect]
     Indication: ASTHMA
     Dosage: 220 UG/ACTUATION, 2 PUFFS BID
  2. PREDNISONE [Suspect]
     Indication: ASTHMA
     Dosage: 60 MG, UNK
  3. FLUCONAZOLE [Suspect]
     Indication: VULVOVAGINAL CANDIDIASIS
     Dosage: 100 MG, UNK
     Route: 048
  4. FLUTICASONE (UNKNOWN) [Suspect]
     Dosage: 110 UG/ACTUATION, 2 PUFFS TWICE DAILY
     Route: 055

REACTIONS (3)
  - VULVOVAGINAL CANDIDIASIS [None]
  - DRUG INTERACTION [None]
  - CUSHING'S SYNDROME [None]
